FAERS Safety Report 12126998 (Version 2)
Quarter: 2016Q1

REPORT INFORMATION
  Report Type: Report from Study
  Country: US (occurrence: US)
  Receive Date: 20160229
  Receipt Date: 20160318
  Transmission Date: 20160526
  Serious: Yes (Hospitalization, Other)
  Sender: FDA-Public Use
  Company Number: US-GILEAD-2016-0199259

PATIENT
  Age: 73 Year
  Sex: Female
  Weight: 66.67 kg

DRUGS (11)
  1. AMBRISENTAN [Suspect]
     Active Substance: AMBRISENTAN
     Indication: CREST SYNDROME
     Dosage: 10 MG, UNK
     Route: 065
  2. MONTELUKAST [Concomitant]
     Active Substance: MONTELUKAST SODIUM
     Indication: CHRONIC OBSTRUCTIVE PULMONARY DISEASE
     Dosage: 10 MG, UNK
     Route: 048
  3. SPIRIVA [Concomitant]
     Active Substance: TIOTROPIUM BROMIDE MONOHYDRATE
     Dosage: 18 UG, UNK
     Route: 055
  4. LASIX [Concomitant]
     Active Substance: FUROSEMIDE
     Dosage: 20 MG, UNK
     Route: 041
  5. LOSARTAN. [Concomitant]
     Active Substance: LOSARTAN
     Indication: HYPERTENSION
     Dosage: 50 MG, UNK
     Route: 048
  6. AMBRISENTAN [Suspect]
     Active Substance: AMBRISENTAN
     Indication: PULMONARY HYPERTENSION
     Dosage: 5 MG, UNK
     Route: 048
     Dates: start: 20160201, end: 20160211
  7. PLETAL [Concomitant]
     Active Substance: CILOSTAZOL
     Dosage: 100 MG, UNK
     Route: 048
  8. LEXAPRO [Concomitant]
     Active Substance: ESCITALOPRAM OXALATE
     Indication: DEPRESSION
     Dosage: 10 MG, UNK
     Route: 048
  9. METOPROLOL XL SANDOZ [Concomitant]
     Active Substance: METOPROLOL SUCCINATE
     Indication: HYPERTENSION
     Dosage: 25 MG, UNK
     Route: 048
  10. ASA [Concomitant]
     Active Substance: ASPIRIN
     Indication: RAYNAUD^S PHENOMENON
     Dosage: 325 MG, UNK
     Route: 048
  11. SILDENAFIL. [Concomitant]
     Active Substance: SILDENAFIL

REACTIONS (5)
  - Hallucination [Recovered/Resolved]
  - Asthenia [Recovered/Resolved]
  - Peripheral swelling [Recovered/Resolved]
  - Bronchitis [Recovered/Resolved]
  - Confusional state [Recovered/Resolved]

NARRATIVE: CASE EVENT DATE: 20160202
